FAERS Safety Report 9268635 (Version 2)
Quarter: 2013Q4

REPORT INFORMATION
  Report Type: Spontaneous
  Country: US (occurrence: US)
  Receive Date: 20130502
  Receipt Date: 20131004
  Transmission Date: 20140711
  Serious: Yes (Hospitalization, Other)
  Sender: FDA-Public Use
  Company Number: US-B.I. PHARMACEUTICALS,INC./RIDGEFIELD-2013-BI-12011BP

PATIENT
  Age: 67 Year
  Sex: Female
  Weight: 77.11 kg

DRUGS (23)
  1. PRADAXA [Suspect]
     Indication: ANTICOAGULANT THERAPY
     Dosage: 300 MG
     Route: 048
     Dates: start: 20101108, end: 20101222
  2. PRADAXA [Suspect]
     Indication: ATRIAL FIBRILLATION
  3. BACTRIM DS [Suspect]
     Indication: URINARY TRACT INFECTION
     Dates: start: 201012, end: 20101222
  4. CLOPIDOGREL [Suspect]
     Dosage: 600 MG
     Dates: start: 20101222, end: 20101222
  5. ELAVIL [Concomitant]
     Dates: start: 2001
  6. ASPIRIN [Concomitant]
     Dosage: 325 MG
  7. SYMBICORT [Concomitant]
  8. VITAMIN D [Concomitant]
  9. VITAMIN B12 [Concomitant]
  10. DIGOXIN [Concomitant]
     Dosage: 0.125 MG
  11. CARDIZEM [Concomitant]
  12. MULTAQ [Concomitant]
     Dosage: 800 MG
  13. NEXIUM [Concomitant]
     Dosage: 40 MG
  14. FENOFIBRATE [Concomitant]
     Dosage: 40 MG
  15. OMEGA-3 FATTY ACIDS [Concomitant]
  16. K-DUR [Concomitant]
     Dosage: 10 MEQ
  17. CRESTOR [Concomitant]
     Dosage: 10 MG
  18. FLECAINIDE [Concomitant]
     Dosage: 300 MG
  19. DILTIAZEM CD [Concomitant]
     Dosage: 360 MG
     Route: 048
  20. PREDNISONE [Concomitant]
     Dosage: 7.5 MG
     Dates: start: 2001
  21. 6-MERCAPTOPURINE [Concomitant]
     Dates: start: 2001
  22. ADVAIR [Concomitant]
  23. OXYCODONE [Concomitant]

REACTIONS (6)
  - Atrial fibrillation [Recovered/Resolved]
  - Gastrointestinal haemorrhage [Unknown]
  - Anaemia [Unknown]
  - Bundle branch block left [Recovered/Resolved]
  - Renal failure acute [Recovered/Resolved]
  - Haematochezia [Unknown]
